FAERS Safety Report 4697387-1 (Version None)
Quarter: 2005Q2

REPORT INFORMATION
  Report Type: 
  Country: None (occurrence: None)
  Receive Date: 20050621
  Receipt Date: 20050608
  Transmission Date: 20051028
  Serious: Yes (Hospitalization)
  Sender: FDA-Public Use
  Company Number: US_0506118309

PATIENT
  Age: 1 Day
  Sex: Female
  Weight: 3 kg

DRUGS (4)
  1. HUMULIN N [Suspect]
     Dates: end: 20041007
  2. HUMULIN N [Suspect]
     Dates: end: 20041007
  3. HUMULIN R [Suspect]
     Dates: end: 20041007
  4. PRENATAL VITAMINS [Concomitant]

REACTIONS (3)
  - DRUG EXPOSURE DURING PREGNANCY [None]
  - HYPOGLYCAEMIA NEONATAL [None]
  - PREMATURE BABY [None]
